FAERS Safety Report 7262768-9 (Version None)
Quarter: 2011Q1

REPORT INFORMATION
  Report Type: 
  Country: None (occurrence: None)
  Receive Date: 20110120
  Receipt Date: 20100907
  Transmission Date: 20110831
  Serious: Yes (Death)
  Sender: FDA-Public Use
  Company Number: UTC-004114

PATIENT
  Age: 66 Year
  Sex: Female

DRUGS (1)
  1. REMODULIN [Suspect]
     Dosage: 64.8 UG/KG (0.045 UG/KG, 1 IN 1 MIN), INTRAVENOUS
     Route: 042

REACTIONS (1)
  - DEATH [None]
